FAERS Safety Report 25546466 (Version 3)
Quarter: 2025Q3

REPORT INFORMATION
  Report Type: Report from Study
  Country: EU (occurrence: EU)
  Receive Date: 20250713
  Receipt Date: 20250801
  Transmission Date: 20251021
  Serious: Yes (Hospitalization)
  Sender: SERVIER
  Company Number: EU-I.R.I.S.-S25009333

PATIENT

DRUGS (15)
  1. TIBSOVO [Suspect]
     Active Substance: IVOSIDENIB
     Indication: Acute myeloid leukaemia refractory
     Dosage: 500 MG, QD
     Route: 048
     Dates: start: 20250528, end: 20250624
  2. TIBSOVO [Suspect]
     Active Substance: IVOSIDENIB
     Dosage: 250 MG, QD
     Route: 048
     Dates: start: 20250625
  3. TIBSOVO [Suspect]
     Active Substance: IVOSIDENIB
     Dosage: 500 MG, QD
     Route: 048
  4. TIBSOVO [Suspect]
     Active Substance: IVOSIDENIB
     Dosage: 500 MG, QD
     Route: 048
  5. MOLIDUSTAT [Concomitant]
     Active Substance: MOLIDUSTAT
     Indication: Acute myeloid leukaemia refractory
     Dosage: 75 MG, BID
     Route: 048
     Dates: start: 20250528
  6. MOLIDUSTAT [Concomitant]
     Active Substance: MOLIDUSTAT
     Dosage: 75 MG, BID
     Route: 048
  7. MOLIDUSTAT [Concomitant]
     Active Substance: MOLIDUSTAT
     Dosage: 75 MG, BID
     Route: 048
  8. COTRIMOXAZOLE [Concomitant]
     Active Substance: SULFAMETHOXAZOLE\TRIMETHOPRIM
     Indication: Product used for unknown indication
     Dosage: 450 MG, 3X A WEEK
     Route: 048
  9. POSACONAZOLE [Concomitant]
     Active Substance: POSACONAZOLE
     Indication: Product used for unknown indication
     Dosage: 300 MG, QD
     Route: 048
  10. LEVOTHYROXINE [Concomitant]
     Active Substance: LEVOTHYROXINE
     Indication: Hypothyroidism
     Dosage: 50 ?G, QD
     Route: 048
  11. RAMIPRIL [Concomitant]
     Active Substance: RAMIPRIL
     Indication: Hypertension
     Dosage: 5 MG, QD
     Route: 048
  12. ACYCLOVIR [Concomitant]
     Active Substance: ACYCLOVIR
     Indication: Product used for unknown indication
     Dosage: 400 MG, BID
     Route: 048
  13. POTASSIUM CHLORIDE [Concomitant]
     Active Substance: POTASSIUM CHLORIDE
     Indication: Product used for unknown indication
     Dosage: 2 G, BID
     Route: 048
  14. AMLODIPINE [Concomitant]
     Active Substance: AMLODIPINE BESYLATE
     Indication: Product used for unknown indication
     Dosage: 5 MG, QD
     Route: 048
  15. Unacid [Concomitant]
     Indication: Infection prophylaxis
     Route: 065

REACTIONS (3)
  - Differentiation syndrome [Recovered/Resolved]
  - Febrile neutropenia [Recovered/Resolved]
  - Differentiation syndrome [Recovered/Resolved]

NARRATIVE: CASE EVENT DATE: 20250604
